FAERS Safety Report 16765859 (Version 1)
Quarter: 2019Q3

REPORT INFORMATION
  Report Type: Spontaneous
  Country: US (occurrence: US)
  Receive Date: 20190713
  Receipt Date: 20190713
  Transmission Date: 20191005
  Serious: Yes (Hospitalization)
  Sender: FDA-Public Use
  Company Number: None

PATIENT
  Age: 76 Year
  Sex: Female
  Weight: 53 kg

DRUGS (1)
  1. ARIMIDEX [Suspect]
     Active Substance: ANASTROZOLE
     Dates: end: 20190416

REACTIONS (13)
  - Fall [None]
  - Leukocytosis [None]
  - Urinary tract infection [None]
  - Back pain [None]
  - Spinal compression fracture [None]
  - Crying [None]
  - Blood potassium decreased [None]
  - Chromaturia [None]
  - Treatment noncompliance [None]
  - Blood sodium decreased [None]
  - Dehydration [None]
  - Blood electrolytes decreased [None]
  - Confusional state [None]

NARRATIVE: CASE EVENT DATE: 20190416
